FAERS Safety Report 13027834 (Version 1)
Quarter: 2016Q4

REPORT INFORMATION
  Report Type: Spontaneous
  Country: US (occurrence: US)
  Receive Date: 20161214
  Receipt Date: 20161214
  Transmission Date: 20170207
  Serious: Yes (Other)
  Sender: FDA-Public Use
  Company Number: US-BAYER-2016-230049

PATIENT
  Age: 30 Year
  Sex: Female
  Weight: 107 kg

DRUGS (6)
  1. FUROSEMIDE. [Concomitant]
     Active Substance: FUROSEMIDE
     Dosage: 30 MG, BID
     Route: 048
  2. ENOXAPARIN [Suspect]
     Active Substance: ENOXAPARIN
     Indication: THROMBOSIS PROPHYLAXIS
     Dosage: 1 MG/KG, BID
     Route: 058
  3. HEPARIN [Interacting]
     Active Substance: HEPARIN SODIUM
     Dosage: 7500 U, BID
     Route: 048
  4. ACETYLSALICYLIC ACID({=100 MG) [Suspect]
     Active Substance: ASPIRIN
     Dosage: 81 MG, QD
     Route: 048
  5. METOPROLOL. [Concomitant]
     Active Substance: METOPROLOL
  6. ENOXAPARIN [Suspect]
     Active Substance: ENOXAPARIN
     Indication: THROMBOSIS PROPHYLAXIS
     Dosage: 1 MG/KG, QD INITIATED ON POSTOPERATIVE DAY 1
     Route: 058

REACTIONS (5)
  - Pulmonary embolism [Recovered/Resolved]
  - Drug administration error [Recovered/Resolved]
  - Maternal exposure during pregnancy [None]
  - Extradural haematoma [Recovered/Resolved]
  - Labelled drug-drug interaction medication error [Recovered/Resolved]
